FAERS Safety Report 13739886 (Version 1)
Quarter: 2017Q3

REPORT INFORMATION
  Report Type: Spontaneous
  Country: US (occurrence: US)
  Receive Date: 20170711
  Receipt Date: 20170711
  Transmission Date: 20171127
  Serious: Yes (Other)
  Sender: FDA-Public Use
  Company Number: US-TARO PHARMACEUTICALS USA.,INC-2017SUN00238

PATIENT
  Age: 85 Year
  Sex: Female

DRUGS (1)
  1. IMIQUIMOD. [Suspect]
     Active Substance: IMIQUIMOD
     Indication: BOWEN^S DISEASE
     Route: 065

REACTIONS (2)
  - Chronic papillomatous dermatitis [Recovered/Resolved]
  - Off label use [Recovered/Resolved]
